FAERS Safety Report 19735473 (Version 2)
Quarter: 2021Q4

REPORT INFORMATION
  Report Type: Spontaneous
  Country: CH (occurrence: CH)
  Receive Date: 20210823
  Receipt Date: 20211104
  Transmission Date: 20220303
  Serious: Yes (Hospitalization, Other)
  Sender: FDA-Public Use
  Company Number: None

PATIENT
  Age: 22 Year
  Sex: Female

DRUGS (4)
  1. LORAZEPAM [Suspect]
     Active Substance: LORAZEPAM
     Dosage: 20 MG, IN TOTAL
     Route: 048
     Dates: start: 20210713, end: 20210713
  2. AMISULPRIDE [Suspect]
     Active Substance: AMISULPRIDE
     Dosage: 1600 MG, IN TOTAL
     Route: 048
     Dates: start: 20210713, end: 20210713
  3. ZOLPIDEM TARTRATE [Suspect]
     Active Substance: ZOLPIDEM TARTRATE
     Dosage: 50 MG, IN TOTAL
     Route: 048
     Dates: start: 20210713, end: 20210713
  4. AKINETON [Suspect]
     Active Substance: BIPERIDEN HYDROCHLORIDE
     Dosage: 4 MG, IN TOTAL
     Dates: start: 20210713, end: 20210713

REACTIONS (3)
  - Suicide attempt [Recovered/Resolved]
  - Overdose [Recovered/Resolved]
  - Electrocardiogram QT prolonged [Recovered/Resolved]

NARRATIVE: CASE EVENT DATE: 20210713
